FAERS Safety Report 21908859 (Version 1)
Quarter: 2023Q1

REPORT INFORMATION
  Report Type: Spontaneous
  Country: US (occurrence: None)
  Receive Date: 20230124
  Receipt Date: 20230124
  Transmission Date: 20230418
  Serious: Yes (Death)
  Sender: FDA-Public Use
  Company Number: None

PATIENT
  Age: 77 Year
  Sex: Female
  Weight: 69.75 kg

DRUGS (1)
  1. TAGRISSO [Suspect]
     Active Substance: OSIMERTINIB
     Indication: Lung neoplasm malignant
     Dosage: OTHER QUANTITY : 1 TABLET(S);?
     Route: 048

REACTIONS (15)
  - Rash [None]
  - Peripheral swelling [None]
  - Joint swelling [None]
  - Deep vein thrombosis [None]
  - Chest pain [None]
  - Therapy change [None]
  - Pain in extremity [None]
  - Asthenia [None]
  - Fall [None]
  - Atrial fibrillation [None]
  - Myocardial infarction [None]
  - Stress cardiomyopathy [None]
  - Peripheral artery thrombosis [None]
  - Hypersomnia [None]
  - Hypophagia [None]

NARRATIVE: CASE EVENT DATE: 20221018
